FAERS Safety Report 19250399 (Version 4)
Quarter: 2021Q4

REPORT INFORMATION
  Report Type: Report from Study
  Country: US (occurrence: US)
  Receive Date: 20210512
  Receipt Date: 20211108
  Transmission Date: 20220304
  Serious: Yes (Other)
  Sender: FDA-Public Use
  Company Number: US-SHIRE-US201900876

PATIENT
  Age: 69 Year
  Sex: Female

DRUGS (1)
  1. HUMAN IMMUNOGLOBULIN G [Suspect]
     Active Substance: HUMAN IMMUNOGLOBULIN G
     Indication: Primary immunodeficiency syndrome
     Dosage: UNK
     Route: 058

REACTIONS (13)
  - Cardiac amyloidosis [Unknown]
  - Pneumonia [Unknown]
  - Amyloidosis [Unknown]
  - Atrial fibrillation [Unknown]
  - Nonalcoholic fatty liver disease [Unknown]
  - Anaemia [Unknown]
  - Abdominal distension [Unknown]
  - Infusion site swelling [Unknown]
  - Sleep apnoea syndrome [Unknown]
  - Urinary tract infection [Unknown]
  - Headache [Unknown]
  - Tachycardia [Unknown]
  - Skin disorder [Unknown]

NARRATIVE: CASE EVENT DATE: 20190110
